FAERS Safety Report 25948993 (Version 1)
Quarter: 2025Q4

REPORT INFORMATION
  Report Type: Spontaneous
  Country: US (occurrence: US)
  Receive Date: 20251022
  Receipt Date: 20251022
  Transmission Date: 20260118
  Serious: No
  Sender: INSUD PHARMA
  Company Number: US-INSUD PHARMA-2510US08386

PATIENT

DRUGS (2)
  1. PROGESTERONE [Suspect]
     Active Substance: PROGESTERONE
     Indication: Menopause
     Dosage: ONE CAPSULE A DAY FROM THE 1ST THROUGH THE 10TH OF THE MONTH
     Route: 048
     Dates: start: 202509
  2. ESTROGENS [Concomitant]
     Active Substance: ESTROGENS

REACTIONS (6)
  - Hypersensitivity [Recovering/Resolving]
  - Throat tightness [Recovering/Resolving]
  - Tongue disorder [Recovering/Resolving]
  - Product substitution issue [Unknown]
  - Product prescribing issue [Unknown]
  - Product use in unapproved indication [Unknown]

NARRATIVE: CASE EVENT DATE: 20250901
